APPROVED DRUG PRODUCT: NICARDIPINE HYDROCHLORIDE
Active Ingredient: NICARDIPINE HYDROCHLORIDE
Strength: 20MG
Dosage Form/Route: CAPSULE;ORAL
Application: A074642 | Product #001
Applicant: PHARMOBEDIENT CONSULTING LLC
Approved: Jul 18, 1996 | RLD: No | RS: No | Type: DISCN